FAERS Safety Report 7161425-7 (Version None)
Quarter: 2010Q4

REPORT INFORMATION
  Report Type: 
  Country: None (occurrence: None)
  Receive Date: 20101215
  Receipt Date: 20101206
  Transmission Date: 20110411
  Serious: Yes (Other)
  Sender: FDA-Public Use
  Company Number: US-TEVA-259083USA

PATIENT
  Sex: Female

DRUGS (2)
  1. CLARAVIS [Suspect]
  2. CLARAVIS [Suspect]

REACTIONS (1)
  - LEUKAEMIA [None]
